FAERS Safety Report 22270354 (Version 7)
Quarter: 2025Q3

REPORT INFORMATION
  Report Type: Spontaneous
  Country: US (occurrence: US)
  Receive Date: 20230501
  Receipt Date: 20250805
  Transmission Date: 20251020
  Serious: Yes (Other)
  Sender: PFIZER
  Company Number: US-PFIZER INC-PV202300075656

PATIENT
  Age: 34 Year
  Sex: Female

DRUGS (15)
  1. IBRANCE [Suspect]
     Active Substance: PALBOCICLIB
     Indication: Breast cancer female
     Route: 048
     Dates: start: 20230427
  2. IBRANCE [Suspect]
     Active Substance: PALBOCICLIB
     Route: 048
     Dates: start: 2025, end: 2025
  3. ASCORBIC ACID [Concomitant]
     Active Substance: ASCORBIC ACID
  4. BUPROPION [Concomitant]
     Active Substance: BUPROPION
  5. CELECOXIB [Concomitant]
     Active Substance: CELECOXIB
  6. FLUOCINONIDE [Concomitant]
     Active Substance: FLUOCINONIDE
  7. GABAPENTIN [Concomitant]
     Active Substance: GABAPENTIN
  8. LETROZOLE [Concomitant]
     Active Substance: LETROZOLE
  9. LORAZEPAM [Concomitant]
     Active Substance: LORAZEPAM
  10. VITAMINS [Concomitant]
     Active Substance: VITAMINS
  11. OXYBUTYNIN [Concomitant]
     Active Substance: OXYBUTYNIN
  12. PROCHLORPERAZINE MALEATE [Concomitant]
     Active Substance: PROCHLORPERAZINE MALEATE
  13. PROLIA [Concomitant]
     Active Substance: DENOSUMAB
  14. XGEVA [Concomitant]
     Active Substance: DENOSUMAB
  15. GOSERELIN [Concomitant]
     Active Substance: GOSERELIN

REACTIONS (19)
  - Breast cancer female [Unknown]
  - Malignant neoplasm progression [Unknown]
  - Pyrexia [Not Recovered/Not Resolved]
  - Alopecia [Not Recovered/Not Resolved]
  - Rash [Recovering/Resolving]
  - Depressed mood [Not Recovered/Not Resolved]
  - Feeling of despair [Not Recovered/Not Resolved]
  - Decreased interest [Not Recovered/Not Resolved]
  - Anhedonia [Not Recovered/Not Resolved]
  - Nervousness [Not Recovered/Not Resolved]
  - Hot flush [Not Recovered/Not Resolved]
  - Blood potassium increased [Unknown]
  - Nausea [Unknown]
  - Bone pain [Unknown]
  - Depression [Not Recovered/Not Resolved]
  - Enzyme abnormality [Unknown]
  - Fatigue [Not Recovered/Not Resolved]
  - Back pain [Unknown]
  - Anxiety [Not Recovered/Not Resolved]
